FAERS Safety Report 17761681 (Version 1)
Quarter: 2020Q2

REPORT INFORMATION
  Report Type: Spontaneous
  Country: FR (occurrence: FR)
  Receive Date: 20200508
  Receipt Date: 20200508
  Transmission Date: 20200714
  Serious: Yes (Hospitalization)
  Sender: FDA-Public Use
  Company Number: FR-CADILA HEALTHCARE LIMITED-FR-ZYDUS-025467

PATIENT

DRUGS (14)
  1. ALFUZOSIN [Concomitant]
     Active Substance: ALFUZOSIN
  2. FORLAX [Concomitant]
     Active Substance: POLYETHYLENE GLYCOL 4000
  3. PANTOPRAZOLE [Concomitant]
     Active Substance: PANTOPRAZOLE
  4. DIFFU K [Concomitant]
     Active Substance: POTASSIUM CHLORIDE
  5. ECONAZOLE. [Concomitant]
     Active Substance: ECONAZOLE NITRATE
  6. UVEDOSE [Concomitant]
     Active Substance: CHOLECALCIFEROL
  7. KARDEGIC [Suspect]
     Active Substance: ASPIRIN DL-LYSINE
     Indication: PRODUCT USED FOR UNKNOWN INDICATION
     Dosage: 1 DOSAGE FORM,300 MG POWDER FOR ORAL SOLUTION IN SACHET,(INTERVAL :1 DAYS)
     Route: 048
     Dates: end: 20180723
  8. LEVOTHYROX [Concomitant]
     Active Substance: LEVOTHYROXINE
     Dosage: 100 MICROGRAMS, SCORED TABLET
  9. MIANSERINE [Concomitant]
     Active Substance: MIANSERIN HYDROCHLORIDE
  10. MODOPAR [Concomitant]
     Active Substance: BENSERAZIDE HYDROCHLORIDE\LEVODOPA
     Dosage: 62.5 (50 MG / 12.5 MG) CAPSULE
  11. GAVISCON [Concomitant]
     Active Substance: ALUMINUM HYDROXIDE\MAGNESIUM CARBONATE
  12. RAMIPRIL. [Suspect]
     Active Substance: RAMIPRIL
     Indication: PRODUCT USED FOR UNKNOWN INDICATION
  13. MODOPAR [Concomitant]
     Active Substance: BENSERAZIDE HYDROCHLORIDE\LEVODOPA
  14. ISORYTHM [Concomitant]
     Active Substance: DISOPYRAMIDE

REACTIONS (1)
  - Haematuria [Recovered/Resolved]

NARRATIVE: CASE EVENT DATE: 20180723
